FAERS Safety Report 18338932 (Version 2)
Quarter: 2021Q1

REPORT INFORMATION
  Report Type: Report from Study
  Country: CA (occurrence: CA)
  Receive Date: 20201002
  Receipt Date: 20210324
  Transmission Date: 20210419
  Serious: Yes (Death)
  Sender: FDA-Public Use
  Company Number: CA-PFIZER INC-2020378723

PATIENT
  Sex: Female

DRUGS (7)
  1. DILAUDID [Concomitant]
     Active Substance: HYDROMORPHONE HYDROCHLORIDE
     Dosage: 1?2 MG EVERY 4 HOURS IF NEEDED
     Route: 065
     Dates: start: 2019
  2. AVASTIN [Suspect]
     Active Substance: BEVACIZUMAB
     Indication: CERVIX CANCER METASTATIC
     Dosage: UNK
     Route: 042
     Dates: start: 20170830, end: 20171213
  3. PANTOPRAZOLE [Concomitant]
     Active Substance: PANTOPRAZOLE
  4. AVASTIN [Suspect]
     Active Substance: BEVACIZUMAB
     Indication: CERVIX CANCER METASTATIC
     Dosage: 945 MG, 1 EVERY 2 WEEKS
     Route: 042
     Dates: start: 2019, end: 2019
  5. TAPAZOLE [Concomitant]
     Active Substance: METHIMAZOLE
  6. TAXOL [Concomitant]
     Active Substance: PACLITAXEL
  7. DECADRON [Concomitant]
     Active Substance: DEXAMETHASONE

REACTIONS (1)
  - Death [Fatal]
